FAERS Safety Report 11311375 (Version 3)
Quarter: 2015Q3

REPORT INFORMATION
  Report Type: Report from Study
  Country: CA (occurrence: CA)
  Receive Date: 20150727
  Receipt Date: 20150918
  Transmission Date: 20151125
  Serious: Yes (Death, Life-Threatening, Hospitalization, Other)
  Sender: FDA-Public Use
  Company Number: PHHY2014CA103081

PATIENT
  Age: 60 Year
  Sex: Male

DRUGS (2)
  1. SANDOSTATIN [Suspect]
     Active Substance: OCTREOTIDE ACETATE
     Indication: PANCREATIC CARCINOMA
     Dosage: 100 UG, TID
     Route: 058
     Dates: start: 20140521
  2. SANDOSTATIN LAR DEPOT [Suspect]
     Active Substance: OCTREOTIDE ACETATE
     Indication: PANCREATIC CARCINOMA
     Dosage: 30 MG, QMO (EVERY 4 WEEKS)
     Route: 030
     Dates: start: 20140821, end: 20150819

REACTIONS (19)
  - Gastrointestinal disorder [Unknown]
  - Asthenia [Unknown]
  - Joint swelling [Unknown]
  - Malaise [Unknown]
  - Muscle atrophy [Unknown]
  - Cachexia [Unknown]
  - Abdominal distension [Unknown]
  - Incorrect product storage [Unknown]
  - Weight decreased [Unknown]
  - Blood pressure diastolic decreased [Unknown]
  - Memory impairment [Unknown]
  - General physical health deterioration [Unknown]
  - Fall [Unknown]
  - Injection site pain [Unknown]
  - Feeling abnormal [Unknown]
  - Upper limb fracture [Unknown]
  - Death [Fatal]
  - Movement disorder [Unknown]
  - Mood altered [Unknown]

NARRATIVE: CASE EVENT DATE: 20150819
